FAERS Safety Report 5033537-5 (Version None)
Quarter: 2006Q2

REPORT INFORMATION
  Report Type: 
  Country: None (occurrence: None)
  Receive Date: 20060621
  Receipt Date: 20060616
  Transmission Date: 20061013
  Serious: Yes (Death)
  Sender: FDA-Public Use
  Company Number: 0606-378

PATIENT
  Age: 5 Day
  Sex: Female
  Weight: 0.7 kg

DRUGS (4)
  1. CUROSURF [Suspect]
     Indication: RESPIRATORY DISTRESS
     Dosage: 72 MILLIGRAMS-INTRATRACHAEL
     Dates: start: 20060530
  2. AMPICILLIN [Concomitant]
  3. GENTAMICIN [Concomitant]
  4. FKYCIBAZIKE [Concomitant]

REACTIONS (4)
  - BRADYCARDIA [None]
  - CONDITION AGGRAVATED [None]
  - METABOLIC ACIDOSIS [None]
  - PNEUMOTHORAX [None]
